FAERS Safety Report 7579960-6 (Version None)
Quarter: 2011Q2

REPORT INFORMATION
  Report Type: 
  Country: None (occurrence: None)
  Receive Date: 20110527
  Receipt Date: 20101103
  Transmission Date: 20111010
  Serious: Yes (Hospitalization)
  Sender: FDA-Public Use
  Company Number: US200906001547

PATIENT
  Age: 48 Year
  Sex: Male
  Weight: 125.8 kg

DRUGS (20)
  1. PROTONIX [Concomitant]
  2. EXENATIDE 10MCG PEN, DISPOSABLE DEVICE (EXENATIDE PEN (10MCG)) [Concomitant]
  3. GLIPIZIDE [Concomitant]
  4. PLENDIL [Concomitant]
  5. KLOR-CON [Concomitant]
  6. COMBIVENT [Concomitant]
  7. NEURONTIN [Concomitant]
  8. HYDROCHLOROTHIAZIDE [Concomitant]
  9. AMOXICILLIN [Concomitant]
  10. LISINOPRIL [Concomitant]
  11. ADVAIR HFA [Concomitant]
  12. BIAXIN [Concomitant]
  13. BYETTA [Suspect]
     Dosage: 5 UG, 2/D ; 10 UG, 2/D, SUBCUTANEOUS
     Route: 058
     Dates: start: 20080501
  14. BYETTA [Suspect]
     Dosage: 5 UG, 2/D ; 10 UG, 2/D, SUBCUTANEOUS
     Route: 058
     Dates: start: 20080401, end: 20080826
  15. BYETTA [Suspect]
     Dosage: 5 UG, 2/D ; 10 UG, 2/D, SUBCUTANEOUS
     Route: 058
     Dates: start: 20061001, end: 20061201
  16. METFORMIN HCL [Concomitant]
  17. ACIPHEX [Concomitant]
  18. ACTOS [Concomitant]
  19. METOPROLOL TARTRATE [Concomitant]
  20. LANTUS [Concomitant]

REACTIONS (2)
  - OFF LABEL USE [None]
  - PANCREATITIS ACUTE [None]
